FAERS Safety Report 10928905 (Version 2)
Quarter: 2015Q2

REPORT INFORMATION
  Report Type: Spontaneous
  Country: US (occurrence: US)
  Receive Date: 20150319
  Receipt Date: 20150524
  Transmission Date: 20150821
  Serious: No
  Sender: FDA-Public Use
  Company Number: US-JNJFOC-20140901858

PATIENT
  Sex: Male

DRUGS (3)
  1. SOMATROPIN [Concomitant]
     Active Substance: SOMATROPIN
     Indication: GROWTH HORMONE DEFICIENCY
     Route: 065
  2. CONCERTA [Suspect]
     Active Substance: METHYLPHENIDATE HYDROCHLORIDE
     Indication: ATTENTION DEFICIT/HYPERACTIVITY DISORDER
     Dosage: UNKNOWN DOSE ONCE A DAY
     Route: 048
  3. CONCERTA [Suspect]
     Active Substance: METHYLPHENIDATE HYDROCHLORIDE
     Indication: ASPERGER^S DISORDER
     Dosage: UNKNOWN DOSE ONCE A DAY
     Route: 048

REACTIONS (1)
  - Product use issue [Unknown]
